FAERS Safety Report 13621865 (Version 1)
Quarter: 2017Q2

REPORT INFORMATION
  Report Type: Spontaneous
  Country: US (occurrence: US)
  Receive Date: 20170607
  Receipt Date: 20170607
  Transmission Date: 20170830
  Serious: No
  Sender: FDA-Public Use
  Company Number: US-ROCHE-1911729

PATIENT
  Age: 51 Year
  Sex: Female
  Weight: 58.11 kg

DRUGS (2)
  1. KLONOPIN [Suspect]
     Active Substance: CLONAZEPAM
     Dosage: ONE TIME DOSE ;ONGOING: NO
     Route: 048
     Dates: start: 20170323, end: 20170323
  2. KLONOPIN [Suspect]
     Active Substance: CLONAZEPAM
     Indication: PRODUCT USED FOR UNKNOWN INDICATION
     Dosage: ONE TIME DOSE
     Route: 048
     Dates: start: 201607, end: 201607

REACTIONS (1)
  - Spinal pain [Not Recovered/Not Resolved]

NARRATIVE: CASE EVENT DATE: 201607
